FAERS Safety Report 7416037-4 (Version None)
Quarter: 2011Q2

REPORT INFORMATION
  Report Type: 
  Country: None (occurrence: None)
  Receive Date: 20110414
  Receipt Date: 20110318
  Transmission Date: 20111010
  Serious: No
  Sender: FDA-Public Use
  Company Number: US-BAYER-2011-027327

PATIENT
  Sex: Male
  Weight: 73 kg

DRUGS (3)
  1. ALEVE (CAPLET) [Suspect]
     Indication: PAIN
     Dosage: 2 DF, ONCE
     Route: 048
     Dates: start: 20110318
  2. PRILOSEC [Concomitant]
  3. KLONOPIN [Concomitant]

REACTIONS (1)
  - INSOMNIA [None]
